FAERS Safety Report 8300199-0 (Version None)
Quarter: 2012Q2

REPORT INFORMATION
  Report Type: 
  Country: None (occurrence: None)
  Receive Date: 20120420
  Receipt Date: 20120409
  Transmission Date: 20120825
  Serious: Yes (Hospitalization)
  Sender: FDA-Public Use
  Company Number: US-JNJFOC-20120404145

PATIENT
  Sex: Male
  Weight: 81.65 kg

DRUGS (3)
  1. OTHER THERAPEUTIC PRODUCTS [Concomitant]
     Route: 065
  2. REMICADE [Suspect]
     Indication: CEREBRAL SARCOIDOSIS
     Route: 042
     Dates: start: 20111201, end: 20120229
  3. PREDNISONE TAB [Concomitant]
     Indication: SARCOIDOSIS
     Route: 048

REACTIONS (1)
  - ASPERGILLOSIS [None]
